FAERS Safety Report 8486973-9 (Version None)
Quarter: 2012Q3

REPORT INFORMATION
  Report Type: 
  Country: None (occurrence: None)
  Receive Date: 20120704
  Receipt Date: 20120626
  Transmission Date: 20120928
  Serious: Yes (Other)
  Sender: FDA-Public Use
  Company Number: PHHY2012US054839

PATIENT
  Age: 29 Year
  Sex: Female

DRUGS (6)
  1. CLOZAPINE [Suspect]
     Dosage: 600 MG, DAILY
  2. PALIPERIDONE [Concomitant]
     Dosage: 6 MG/ DAY
  3. LAMOTRGINE [Concomitant]
     Dosage: 200 MG/ DAY
  4. ANTIPSYCHOTICS [Concomitant]
  5. VALPROATE SODIUM [Suspect]
  6. HALOPERIDOL [Suspect]

REACTIONS (3)
  - HYPOMANIA [None]
  - MANIA [None]
  - OESTRADIOL DECREASED [None]
